FAERS Safety Report 16880396 (Version 2)
Quarter: 2019Q4

REPORT INFORMATION
  Report Type: Spontaneous
  Country: AU (occurrence: AU)
  Receive Date: 20191003
  Receipt Date: 20191024
  Transmission Date: 20200122
  Serious: Yes (Other)
  Sender: FDA-Public Use
  Company Number: AU-TAKEDA-2019TUS054698

PATIENT
  Age: 74 Year
  Sex: Male

DRUGS (2)
  1. COLGOUT [Concomitant]
     Active Substance: COLCHICINE
     Dosage: UNK UNK, QD
     Route: 065
     Dates: start: 20171007, end: 20171022
  2. ADENURIC [Suspect]
     Active Substance: FEBUXOSTAT
     Indication: GOUT
     Dosage: 40 MILLIGRAM, QOD
     Route: 065
     Dates: start: 20171011, end: 20171108

REACTIONS (4)
  - Chronic inflammatory demyelinating polyradiculoneuropathy [Unknown]
  - Polymyalgia rheumatica [Unknown]
  - Product use issue [Recovered/Resolved]
  - Immune system disorder [Unknown]

NARRATIVE: CASE EVENT DATE: 2014
